FAERS Safety Report 22805829 (Version 3)
Quarter: 2023Q4

REPORT INFORMATION
  Report Type: Spontaneous
  Country: US (occurrence: US)
  Receive Date: 20230809
  Receipt Date: 20231024
  Transmission Date: 20240110
  Serious: No
  Sender: FDA-Public Use
  Company Number: US-PFIZER INC-PV202300136430

PATIENT
  Age: 76 Year
  Sex: Female
  Weight: 90.72 kg

DRUGS (1)
  1. VERAPAMIL HCL [Suspect]
     Active Substance: VERAPAMIL HYDROCHLORIDE
     Indication: Migraine
     Dosage: 240 MG, 2X/DAY (TAKES IN THE MORNING AND NIGHT)
     Route: 048

REACTIONS (5)
  - Drug ineffective for unapproved indication [Unknown]
  - Off label use [Unknown]
  - Headache [Unknown]
  - Disorientation [Unknown]
  - Feeling abnormal [Unknown]
